FAERS Safety Report 9735267 (Version 1)
Quarter: 2013Q4

REPORT INFORMATION
  Report Type: Spontaneous
  Country: AU (occurrence: AU)
  Receive Date: 20131206
  Receipt Date: 20131206
  Transmission Date: 20140711
  Serious: Yes (Other)
  Sender: FDA-Public Use
  Company Number: AU-PFIZER INC-2013343280

PATIENT
  Sex: 0

DRUGS (1)
  1. SALAZOPYRIN EN [Suspect]
     Dosage: UNK

REACTIONS (1)
  - Intestinal obstruction [Unknown]
